FAERS Safety Report 18323039 (Version 3)
Quarter: 2021Q1

REPORT INFORMATION
  Report Type: Spontaneous
  Country: US (occurrence: US)
  Receive Date: 20200928
  Receipt Date: 20210122
  Transmission Date: 20210419
  Serious: Yes (Other)
  Sender: FDA-Public Use
  Company Number: US-MALLINCKRODT-T202004666

PATIENT
  Sex: Male
  Weight: 78 kg

DRUGS (3)
  1. H.P. ACTHAR [Suspect]
     Active Substance: CORTICOTROPIN
     Indication: GLOMERULONEPHRITIS MEMBRANOUS
  2. H.P. ACTHAR [Suspect]
     Active Substance: CORTICOTROPIN
     Indication: NEPHROTIC SYNDROME
  3. H.P. ACTHAR [Suspect]
     Active Substance: CORTICOTROPIN
     Indication: PROTEINURIA
     Dosage: 80 UNITS, EVERY MONDAY AND THURSDAY
     Route: 058
     Dates: start: 201909

REACTIONS (13)
  - Lipohypertrophy [Not Recovered/Not Resolved]
  - Tooth fracture [Unknown]
  - Cushingoid [Not Recovered/Not Resolved]
  - Hypertension [Not Recovered/Not Resolved]
  - Increased tendency to bruise [Not Recovered/Not Resolved]
  - Thrombosis [Not Recovered/Not Resolved]
  - Back disorder [Not Recovered/Not Resolved]
  - Dental caries [Unknown]
  - Fatigue [Not Recovered/Not Resolved]
  - Glomerulonephritis membranous [Unknown]
  - Spinal operation [Not Recovered/Not Resolved]
  - Diabetes mellitus inadequate control [Recovered/Resolved]
  - Disease recurrence [Unknown]

NARRATIVE: CASE EVENT DATE: 2020
